FAERS Safety Report 7961167-1 (Version None)
Quarter: 2011Q4

REPORT INFORMATION
  Report Type: 
  Country: None (occurrence: None)
  Receive Date: 20111207
  Receipt Date: 20111204
  Transmission Date: 20120403
  Serious: Yes (Other)
  Sender: FDA-Public Use
  Company Number: CO-PFIZER INC-2011297480

PATIENT
  Age: 13 Year
  Sex: Male

DRUGS (1)
  1. LIPITOR [Suspect]
     Dosage: UNK
     Dates: start: 20090101

REACTIONS (3)
  - HEPATOMEGALY [None]
  - SPLENOMEGALY [None]
  - LYMPHOPENIA [None]
